FAERS Safety Report 8835551 (Version 1)
Quarter: 2012Q4

REPORT INFORMATION
  Report Type: 
  Country: MX (occurrence: MX)
  Receive Date: 20121011
  Receipt Date: 20121011
  Transmission Date: 20130627
  Serious: Yes (Other)
  Sender: FDA-Public Use
  Company Number: MX-PFIZER INC-2012251811

PATIENT
  Age: 52 Year
  Sex: Male
  Weight: 76.5 kg

DRUGS (2)
  1. PRISTIQ [Suspect]
     Indication: DEPRESSION
     Dosage: 50 mg, 1x/day
     Route: 048
     Dates: start: 20120923
  2. ALPRAZOLAM [Suspect]
     Indication: ANXIETY
     Dosage: 2 mg, UNK
     Route: 048
     Dates: start: 20120919

REACTIONS (11)
  - Chest pain [Unknown]
  - Hypertension [Unknown]
  - Palpitations [Unknown]
  - Anxiety [Unknown]
  - Drug ineffective [Not Recovered/Not Resolved]
  - Dyskinesia [Unknown]
  - Nightmare [Unknown]
  - Feeling abnormal [Unknown]
  - Finger deformity [Unknown]
  - Hand deformity [Unknown]
  - Pruritus [Unknown]
